FAERS Safety Report 8486039-8 (Version None)
Quarter: 2012Q3

REPORT INFORMATION
  Report Type: 
  Country: None (occurrence: None)
  Receive Date: 20120703
  Receipt Date: 20120625
  Transmission Date: 20120928
  Serious: Yes (Hospitalization)
  Sender: FDA-Public Use
  Company Number: FR-NOVOPROD-350548

PATIENT
  Age: 56 Year
  Sex: Female
  Weight: 86.6 kg

DRUGS (2)
  1. VICTOZA [Suspect]
     Indication: OBESITY
     Dosage: 0.6 MG, QD
     Route: 058
     Dates: start: 20110809
  2. VICTOZA [Suspect]
     Indication: TYPE 2 DIABETES MELLITUS
     Dosage: 3.0 MG, QD
     Route: 058
     Dates: start: 20110919, end: 20110927

REACTIONS (1)
  - THYROID ADENOMA [None]
